FAERS Safety Report 7772465-9 (Version None)
Quarter: 2011Q3

REPORT INFORMATION
  Report Type: 
  Country: None (occurrence: None)
  Receive Date: 20110921
  Receipt Date: 20110921
  Transmission Date: 20111222
  Serious: Yes (Hospitalization)
  Sender: FDA-Public Use
  Company Number: None

PATIENT
  Sex: Female
  Weight: 65.01 kg

DRUGS (3)
  1. CISPLATIN [Suspect]
     Dosage: 128 MG
  2. ERBITUX [Suspect]
     Dosage: 1544 MG
  3. FLUOROURACIL [Suspect]
     Dosage: 6840 MG

REACTIONS (9)
  - MUCOSAL INFLAMMATION [None]
  - ELECTROLYTE IMBALANCE [None]
  - FATIGUE [None]
  - STOMATITIS [None]
  - DIARRHOEA [None]
  - NAUSEA [None]
  - DECREASED APPETITE [None]
  - NEUTROPENIA [None]
  - PERFORMANCE STATUS DECREASED [None]
